FAERS Safety Report 6603257-1 (Version None)
Quarter: 2010Q1

REPORT INFORMATION
  Report Type: 
  Country: None (occurrence: None)
  Receive Date: 20100226
  Receipt Date: 20100215
  Transmission Date: 20100710
  Serious: Yes (Death)
  Sender: FDA-Public Use
  Company Number: US-JNJFOC-20100208896

PATIENT
  Sex: Male
  Weight: 124.74 kg

DRUGS (34)
  1. FENTANYL [Suspect]
     Indication: DRUG USE FOR UNKNOWN INDICATION
  2. TRAMADOL HCL [Suspect]
     Indication: DRUG USE FOR UNKNOWN INDICATION
  3. HYDROCODONE [Suspect]
     Indication: DRUG USE FOR UNKNOWN INDICATION
  4. GUAIFENESIN [Concomitant]
  5. DEXTROMETHORPHAN [Concomitant]
  6. CLINDAMYCIN HYDROCHLORIDE [Concomitant]
  7. MEGACE [Concomitant]
  8. METHANDRIOL [Concomitant]
  9. METFORMIN HYDROCHLORIDE [Concomitant]
  10. ARIMIDEX [Concomitant]
  11. TAMOXIFEN CITRATE [Concomitant]
  12. ACIPHEX [Concomitant]
  13. EPHEDRINE SUL CAP [Concomitant]
  14. EXCEDRIN (MIGRAINE) [Concomitant]
  15. PRO-VIRON [Concomitant]
  16. SPIROPENT [Concomitant]
  17. CLONAZEPAM [Concomitant]
  18. TEQUIN [Concomitant]
  19. CYTOMEL [Concomitant]
  20. CEPHALEXIN [Concomitant]
  21. NITROFURANTOIN [Concomitant]
  22. METHANDROSTENOLONE [Concomitant]
  23. PROPECIA [Concomitant]
  24. ALBUTEROL [Concomitant]
  25. THIOMUCASE [Concomitant]
  26. ANASTROZOLE [Concomitant]
  27. DICLOFENAC SODIUM [Concomitant]
  28. METHOCARBAMOL [Concomitant]
  29. AZITHROMYCIN [Concomitant]
  30. NO DOZ [Concomitant]
  31. CHORAGON [Concomitant]
  32. KENALOG [Concomitant]
  33. EPOGEN [Concomitant]
  34. PRIMOBOLAN [Concomitant]

REACTIONS (2)
  - DRUG TOXICITY [None]
  - WRONG TECHNIQUE IN DRUG USAGE PROCESS [None]
